FAERS Safety Report 12586520 (Version 1)
Quarter: 2016Q3

REPORT INFORMATION
  Report Type: Spontaneous
  Country: US (occurrence: US)
  Receive Date: 20160725
  Receipt Date: 20160725
  Transmission Date: 20161109
  Serious: No
  Sender: FDA-Public Use
  Company Number: US-PFIZER INC-2016323008

PATIENT
  Age: 60 Year
  Sex: Female
  Weight: 58 kg

DRUGS (5)
  1. BABY ASPIRIN [Concomitant]
     Active Substance: ASPIRIN
     Dosage: 80 MG, UNK
  2. CRESTOR [Concomitant]
     Active Substance: ROSUVASTATIN CALCIUM
  3. CELEBREX [Suspect]
     Active Substance: CELECOXIB
     Indication: TENDONITIS
     Dosage: 200 MG, 1X/DAY(IN THE EVENING)
     Route: 048
     Dates: start: 20160624
  4. CELEBREX [Suspect]
     Active Substance: CELECOXIB
     Indication: BURSITIS
  5. COENZYME Q10 [Concomitant]
     Active Substance: UBIDECARENONE

REACTIONS (4)
  - Pollakiuria [Not Recovered/Not Resolved]
  - Fatigue [Unknown]
  - Product use issue [Unknown]
  - Micturition urgency [Unknown]

NARRATIVE: CASE EVENT DATE: 20160624
